FAERS Safety Report 25088978 (Version 1)
Quarter: 2025Q1

REPORT INFORMATION
  Report Type: Spontaneous
  Country: None (occurrence: US)
  Receive Date: 20250318
  Receipt Date: 20250318
  Transmission Date: 20250409
  Serious: No
  Sender: TEVA
  Company Number: US-TEVA-VS-3305704

PATIENT
  Age: 69 Year
  Sex: Female

DRUGS (1)
  1. AUSTEDO XR [Suspect]
     Active Substance: DEUTETRABENAZINE
     Indication: Tardive dyskinesia
     Route: 065

REACTIONS (6)
  - Feeling abnormal [Unknown]
  - Oral mucosal blistering [Unknown]
  - Chills [Unknown]
  - Dyskinesia [Unknown]
  - Product use issue [Unknown]
  - Incorrect dose administered [Unknown]
